FAERS Safety Report 25058992 (Version 2)
Quarter: 2025Q2

REPORT INFORMATION
  Report Type: Spontaneous
  Country: US (occurrence: US)
  Receive Date: 20250310
  Receipt Date: 20250425
  Transmission Date: 20250716
  Serious: Yes (Hospitalization)
  Sender: BRISTOL-MYERS SQUIBB COMPANY
  Company Number: US-BRISTOL-MYERS SQUIBB COMPANY-2025-031370

PATIENT
  Age: 74 Year
  Sex: Female

DRUGS (2)
  1. LENALIDOMIDE [Suspect]
     Active Substance: LENALIDOMIDE
     Indication: Plasma cell myeloma
     Dosage: TAKE 1 WHOLE CAPSULE BY MOUTH W/ WATER DAILY, DAYS 1-14, OFF 7 DAYS PER 21-DAY CYCLE. DO NOT CRUSH,
     Route: 048
  2. LENALIDOMIDE [Suspect]
     Active Substance: LENALIDOMIDE
     Dosage: TAKE 1 WHOLE CAPSULE BY MOUTH W/ WATER DAILY, DAYS 1-14, OFF 7 DAYS PER 21-DAY CYCLE. DO NOT CRUSH,
     Route: 048

REACTIONS (5)
  - Dizziness [Not Recovered/Not Resolved]
  - Off label use [Unknown]
  - Urinary tract infection [Recovered/Resolved]
  - Dehydration [Recovered/Resolved]
  - Infection [Not Recovered/Not Resolved]
